FAERS Safety Report 14646288 (Version 4)
Quarter: 2018Q2

REPORT INFORMATION
  Report Type: Spontaneous
  Country: DE (occurrence: DE)
  Receive Date: 20180316
  Receipt Date: 20180425
  Transmission Date: 20180711
  Serious: Yes (Hospitalization)
  Sender: FDA-Public Use
  Company Number: DE-HORIZON-RAV-0041-2018

PATIENT
  Age: 11 Year
  Sex: Female

DRUGS (2)
  1. RAVICTI [Suspect]
     Active Substance: GLYCEROL PHENYLBUTYRATE
     Indication: UREA CYCLE DISORDER
     Dosage: 3 TIMES DAILY (3 X 2,7 ML PER DAY)
     Dates: start: 20180311
  2. L-ARGININE [Concomitant]
     Active Substance: ARGININE

REACTIONS (7)
  - Psychomotor hyperactivity [Recovered/Resolved]
  - Vomiting [Recovered/Resolved]
  - Hallucination [Recovered/Resolved]
  - Headache [Recovered/Resolved]
  - Dizziness [Recovered/Resolved]
  - Gastrointestinal infection [Recovered/Resolved]
  - Nausea [Recovered/Resolved]

NARRATIVE: CASE EVENT DATE: 201803
